FAERS Safety Report 4822929-2 (Version None)
Quarter: 2005Q4

REPORT INFORMATION
  Report Type: 
  Country: None (occurrence: None)
  Receive Date: 20051108
  Receipt Date: 20050415
  Transmission Date: 20060501
  Serious: Yes (Other)
  Sender: FDA-Public Use
  Company Number: PHBS2005NL05487

PATIENT
  Age: 3 Year
  Sex: Female

DRUGS (4)
  1. CYCLOSPORINE [Suspect]
     Indication: BONE MARROW TRANSPLANT
     Route: 065
  2. BUSULFAN [Concomitant]
     Indication: BONE MARROW TRANSPLANT
     Dosage: 5 MG/KG/D
  3. CYCLOPHOSPHAMIDE [Concomitant]
     Indication: BONE MARROW TRANSPLANT
     Dosage: 60 MG/KG/D
  4. ATGAM [Concomitant]
     Indication: BONE MARROW TRANSPLANT
     Dosage: 5 MG/KG/D

REACTIONS (6)
  - CEREBRAL ATROPHY [None]
  - CONVULSION [None]
  - EYE DISORDER [None]
  - MOTOR DYSFUNCTION [None]
  - NEUROLOGICAL SYMPTOM [None]
  - SPEECH DISORDER [None]
